FAERS Safety Report 8011771-X (Version None)
Quarter: 2011Q4

REPORT INFORMATION
  Report Type: 
  Country: None (occurrence: None)
  Receive Date: 20111228
  Receipt Date: 20111220
  Transmission Date: 20120403
  Serious: Yes (Hospitalization)
  Sender: FDA-Public Use
  Company Number: PHHY2011GB110806

PATIENT
  Sex: Female
  Weight: 53.8 kg

DRUGS (8)
  1. CISPLATIN [Suspect]
     Dosage: 47 MG, UNK
     Route: 042
     Dates: start: 20110627
  2. CAPECITABINE [Suspect]
     Indication: GASTRIC CANCER
     Dosage: UNK
     Route: 048
     Dates: start: 20110517
  3. EPIRUBICIN [Suspect]
     Dosage: 80 MG, UNK
     Route: 042
     Dates: start: 20110627
  4. CAPECITABINE [Suspect]
     Dosage: 1800 MG, UNK
     Route: 048
     Dates: start: 20110627
  5. EPIRUBICIN [Suspect]
     Indication: GASTRIC CANCER
     Dosage: UNK
     Route: 042
     Dates: start: 20110517
  6. BEVACIZUMAB [Suspect]
     Dosage: 437.5 MG, UNK
     Route: 042
     Dates: start: 20110627
  7. CISPLATIN [Suspect]
     Indication: GASTRIC CANCER
     Dosage: UNK
     Route: 042
     Dates: start: 20110517
  8. BEVACIZUMAB [Suspect]
     Indication: GASTRIC CANCER
     Dosage: UNK
     Route: 042
     Dates: start: 20110517

REACTIONS (4)
  - DIZZINESS [None]
  - PALPITATIONS [None]
  - PULMONARY EMBOLISM [None]
  - DYSPNOEA [None]
